FAERS Safety Report 5134198-7 (Version None)
Quarter: 2006Q4

REPORT INFORMATION
  Report Type: 
  Country: None (occurrence: None)
  Receive Date: 20061019
  Receipt Date: 20061004
  Transmission Date: 20070319
  Serious: Yes (Hospitalization, Disabling, Other)
  Sender: FDA-Public Use
  Company Number: 2006RR-04021

PATIENT
  Age: 91 Year
  Sex: Male

DRUGS (8)
  1. EZETIMIBE [Suspect]
     Indication: DIABETES MELLITUS
     Dosage: 10 MG, ORAL
     Route: 048
     Dates: start: 20060501, end: 20060912
  2. SIMVASTATIN [Suspect]
     Indication: DIABETES MELLITUS
     Dosage: 40 MG, ORAL
     Route: 048
     Dates: start: 20060501, end: 20060911
  3. SIMVASTATIN [Suspect]
     Indication: DIABETES MELLITUS
     Dosage: 40 MG, ORAL
     Route: 048
     Dates: start: 20060501, end: 20060911
  4. ALFACALCIDOL [Concomitant]
  5. AMLODIPINE [Concomitant]
  6. ASPIRIN [Concomitant]
  7. GTN-S [Concomitant]
  8. LISINOPRIL [Concomitant]

REACTIONS (3)
  - FALL [None]
  - MYOPATHY [None]
  - TROPONIN INCREASED [None]
